FAERS Safety Report 20532971 (Version 1)
Quarter: 2022Q1

REPORT INFORMATION
  Report Type: Spontaneous
  Country: CN (occurrence: CN)
  Receive Date: 20220301
  Receipt Date: 20220301
  Transmission Date: 20220423
  Serious: Yes (Other)
  Sender: FDA-Public Use
  Company Number: CN-CELGENE-CHN-20220204192

PATIENT
  Age: 65 Year
  Sex: Male

DRUGS (3)
  1. ABRAXANE [Suspect]
     Active Substance: PACLITAXEL
     Indication: Oesophageal squamous cell carcinoma
     Dosage: .32 GRAM
     Route: 041
     Dates: start: 20220106, end: 20220106
  2. ABRAXANE [Suspect]
     Active Substance: PACLITAXEL
     Indication: Off label use
  3. SODIUM CHLORIDE [Concomitant]
     Active Substance: SODIUM CHLORIDE
     Indication: Product used for unknown indication
     Dosage: 80 MILLILITER
     Route: 065
     Dates: start: 20220106

REACTIONS (4)
  - Neurotoxicity [Unknown]
  - Flank pain [Unknown]
  - Hypoaesthesia [Unknown]
  - Arthralgia [Unknown]

NARRATIVE: CASE EVENT DATE: 20220113
